FAERS Safety Report 8826049 (Version 2)
Quarter: 2015Q2

REPORT INFORMATION
  Report Type: Report from Study
  Country: US (occurrence: US)
  Receive Date: 20121005
  Receipt Date: 20150421
  Transmission Date: 20150821
  Serious: Yes (Death)
  Sender: FDA-Public Use
  Company Number: US-ROCHE-1133486

PATIENT
  Sex: Male

DRUGS (22)
  1. VINCRISTINE [Concomitant]
     Active Substance: VINCRISTINE
     Route: 042
  2. ONCOVIN [Concomitant]
     Active Substance: VINCRISTINE SULFATE
  3. ATENOLOL. [Concomitant]
     Active Substance: ATENOLOL
     Route: 065
  4. RITUXAN [Suspect]
     Active Substance: RITUXIMAB
     Indication: B-CELL LYMPHOMA
     Route: 042
     Dates: start: 20020204
  5. TETRACYCLINE [Concomitant]
     Active Substance: TETRACYCLINE
  6. HYDROXYDAUNORUBICIN [Concomitant]
     Active Substance: DOXORUBICIN
  7. CISPLATIN. [Concomitant]
     Active Substance: CISPLATIN
  8. COMBIVENT [Concomitant]
     Active Substance: ALBUTEROL SULFATE\IPRATROPIUM BROMIDE
  9. DECADRON [Concomitant]
     Active Substance: DEXAMETHASONE
     Route: 042
  10. CYTOXAN [Concomitant]
     Active Substance: CYCLOPHOSPHAMIDE
     Route: 042
  11. CYCLOPHOSPHAMIDE. [Concomitant]
     Active Substance: CYCLOPHOSPHAMIDE
  12. FLOVENT [Concomitant]
     Active Substance: FLUTICASONE PROPIONATE
  13. AMITRIPTYLINE [Concomitant]
     Active Substance: AMITRIPTYLINE
  14. BENADRYL [Concomitant]
     Active Substance: DIPHENHYDRAMINE HYDROCHLORIDE
     Route: 048
  15. BENADRYL [Concomitant]
     Active Substance: DIPHENHYDRAMINE HYDROCHLORIDE
     Route: 048
  16. DEMEROL [Concomitant]
     Active Substance: MEPERIDINE HYDROCHLORIDE
     Route: 065
  17. CYTARABINE. [Concomitant]
     Active Substance: CYTARABINE
  18. PREVACID [Concomitant]
     Active Substance: LANSOPRAZOLE
  19. RESTORIL [Concomitant]
     Active Substance: TEMAZEPAM
  20. ANZEMET [Concomitant]
     Active Substance: DOLASETRON MESYLATE
     Route: 042
  21. PREDNISONE. [Concomitant]
     Active Substance: PREDNISONE
  22. LIPITOR [Concomitant]
     Active Substance: ATORVASTATIN CALCIUM
     Route: 065

REACTIONS (24)
  - Discomfort [Unknown]
  - Nasal congestion [Unknown]
  - Bronchitis [Unknown]
  - Constipation [Unknown]
  - Mantle cell lymphoma recurrent [Unknown]
  - Asthenia [Unknown]
  - Upper extremity mass [Unknown]
  - Pulmonary embolism [Unknown]
  - Deep vein thrombosis [Unknown]
  - Throat irritation [Unknown]
  - Malaise [Unknown]
  - Rectal haemorrhage [Unknown]
  - Throat tightness [Unknown]
  - Death [Fatal]
  - Heart rate increased [Unknown]
  - Pleural effusion [Unknown]
  - Weight decreased [Unknown]
  - Asthma [Unknown]
  - Swelling [Unknown]
  - Dizziness [Unknown]
  - Disease progression [Unknown]
  - Blood pressure decreased [Unknown]
  - Pain in extremity [Unknown]
  - Dysphagia [Unknown]
